FAERS Safety Report 4522383-4 (Version None)
Quarter: 2004Q4

REPORT INFORMATION
  Report Type: 
  Country: None (occurrence: None)
  Receive Date: 20041209
  Receipt Date: 20041130
  Transmission Date: 20050328
  Serious: Yes (Other)
  Sender: FDA-Public Use
  Company Number: GB-GLAXOSMITHKLINE-B0359929A

PATIENT
  Age: 29 Year
  Sex: Female

DRUGS (5)
  1. KALETRA [Suspect]
     Indication: HIV INFECTION
     Dosage: 6MG PER DAY
     Route: 065
     Dates: start: 20040101, end: 20040506
  2. COMBIVIR [Suspect]
     Indication: HIV INFECTION
     Dosage: 2U PER DAY
     Route: 065
     Dates: start: 20040506
  3. DIDANOSINE [Suspect]
     Indication: HIV INFECTION
     Dosage: 250MG PER DAY
     Route: 065
     Dates: start: 20040101, end: 20040506
  4. VIREAD [Suspect]
     Indication: HIV INFECTION
     Dosage: 245MG PER DAY
     Route: 065
     Dates: start: 20040101, end: 20040506
  5. NELFINAVIR [Suspect]
     Indication: HIV INFECTION
     Dosage: 2.5G PER DAY
     Route: 065
     Dates: start: 20040506

REACTIONS (2)
  - DRUG EXPOSURE DURING PREGNANCY [None]
  - INTRA-UTERINE DEATH [None]
